FAERS Safety Report 8004051-X (Version None)
Quarter: 2011Q4

REPORT INFORMATION
  Report Type: 
  Country: None (occurrence: None)
  Receive Date: 20111222
  Receipt Date: 20111213
  Transmission Date: 20120403
  Serious: Yes (Hospitalization, Other)
  Sender: FDA-Public Use
  Company Number: FR-ASTRAZENECA-2011SE34702

PATIENT
  Age: 885 Month
  Sex: Female

DRUGS (5)
  1. VALSARTAN [Concomitant]
  2. SOTALOL HCL [Concomitant]
  3. TAMOXIFEN CITRATE [Suspect]
     Indication: BREAST CANCER
     Route: 048
     Dates: start: 20101201, end: 20110125
  4. ASPIRIN [Concomitant]
     Dates: start: 20100401
  5. ARIMIDEX [Suspect]
     Indication: BREAST CANCER
     Route: 048
     Dates: start: 20101001, end: 20110125

REACTIONS (2)
  - MESENTERIC VEIN THROMBOSIS [None]
  - CHOROIDITIS [None]
